FAERS Safety Report 5581442-8 (Version None)
Quarter: 2007Q4

REPORT INFORMATION
  Report Type: 
  Country: None (occurrence: None)
  Receive Date: 20071231
  Receipt Date: 20071231
  Transmission Date: 20080405
  Serious: Yes (Hospitalization)
  Sender: FDA-Public Use
  Company Number: None

PATIENT
  Age: 49 Year
  Sex: Female
  Weight: 89.8122 kg

DRUGS (1)
  1. CLYCOPYRROLATE [Suspect]
     Indication: ULCER
     Dosage: TWICE A DAY
     Dates: start: 20071221, end: 20071225

REACTIONS (5)
  - DYSURIA [None]
  - PARAESTHESIA [None]
  - PARAESTHESIA ORAL [None]
  - PRURITUS GENERALISED [None]
  - RASH GENERALISED [None]
